FAERS Safety Report 8782475 (Version 2)
Quarter: 2013Q4

REPORT INFORMATION
  Report Type: Spontaneous
  Country: US (occurrence: US)
  Receive Date: 20120913
  Receipt Date: 20131101
  Transmission Date: 20140711
  Serious: No
  Sender: FDA-Public Use
  Company Number: US-009507513-1209USA004429

PATIENT
  Sex: Female

DRUGS (2)
  1. HEXADROL TABLETS [Suspect]
     Indication: GLUCOCORTICOIDS ABNORMAL
     Dosage: 1-2.5 MG/DAY
  2. HEXADROL TABLETS [Suspect]
     Dosage: 14 MG/DAY

REACTIONS (1)
  - Drug ineffective [Unknown]
